FAERS Safety Report 4603247-4 (Version None)
Quarter: 2005Q1

REPORT INFORMATION
  Report Type: 
  Country: None (occurrence: None)
  Receive Date: 20050308
  Receipt Date: 20050228
  Transmission Date: 20050727
  Serious: Yes (Life-Threatening, Hospitalization)
  Sender: FDA-Public Use
  Company Number: 2005AC00366

PATIENT
  Age: 60 Year
  Sex: Female
  Weight: 44.6 kg

DRUGS (3)
  1. OMEPRAZOLE [Suspect]
     Indication: MALLORY-WEISS SYNDROME
     Dosage: 40 MG
     Dates: start: 20030901, end: 20040121
  2. INSULIN PENMIX [Concomitant]
  3. CILAZAPRIL [Concomitant]

REACTIONS (10)
  - ABDOMINAL PAIN [None]
  - ABDOMINAL TENDERNESS [None]
  - BLOOD SODIUM DECREASED [None]
  - CACHEXIA [None]
  - HIRSUTISM [None]
  - HYPONATRAEMIA [None]
  - PYREXIA [None]
  - UTERINE LEIOMYOMA [None]
  - VOMITING [None]
  - WEIGHT DECREASED [None]
